FAERS Safety Report 21011179 (Version 1)
Quarter: 2022Q2

REPORT INFORMATION
  Report Type: Spontaneous
  Country: FR (occurrence: FR)
  Receive Date: 20220627
  Receipt Date: 20220627
  Transmission Date: 20220721
  Serious: Yes (Other)
  Sender: FDA-Public Use
  Company Number: None

PATIENT
  Age: 75 Year
  Sex: Male
  Weight: 76 kg

DRUGS (1)
  1. HYDREA [Suspect]
     Active Substance: HYDROXYUREA
     Indication: Essential thrombocythaemia
     Dosage: J1 : 500MG ; J2 : 1000MG; J3 500MG; J4 1000MG...
     Route: 048
     Dates: start: 20160427

REACTIONS (2)
  - Skin cancer [Not Recovered/Not Resolved]
  - Hyperkeratosis [Not Recovered/Not Resolved]

NARRATIVE: CASE EVENT DATE: 20180601
